FAERS Safety Report 6267463-0 (Version None)
Quarter: 2009Q3

REPORT INFORMATION
  Report Type: 
  Country: None (occurrence: None)
  Receive Date: 20090714
  Receipt Date: 20090706
  Transmission Date: 20100115
  Serious: Yes (Hospitalization)
  Sender: FDA-Public Use
  Company Number: JP-EISAI INC.-E3810-02974-SPO-JP

PATIENT
  Age: 53 Year
  Sex: Male

DRUGS (4)
  1. PARIET (RABEPRAZOLE) [Suspect]
     Route: 048
     Dates: start: 20090701
  2. PARIET (RABEPRAZOLE) [Suspect]
     Indication: DUODENAL ULCER
     Route: 048
     Dates: start: 20090623, end: 20090630
  3. SAWACILLIN [Concomitant]
     Route: 048
     Dates: start: 20090701
  4. KLARICID [Concomitant]
     Route: 048
     Dates: start: 20090701

REACTIONS (1)
  - ALTERED STATE OF CONSCIOUSNESS [None]
